FAERS Safety Report 7184698-3 (Version None)
Quarter: 2010Q4

REPORT INFORMATION
  Report Type: 
  Country: None (occurrence: None)
  Receive Date: 20101123
  Receipt Date: 20100915
  Transmission Date: 20110411
  Serious: No
  Sender: FDA-Public Use
  Company Number: 018854

PATIENT
  Sex: Female
  Weight: 54.9 kg

DRUGS (2)
  1. CIMZIA [Suspect]
     Indication: CROHN'S DISEASE
     Dosage: (400 MG 1X/MONTH SUBCUTANEOUS)
     Route: 058
     Dates: start: 20091102
  2. MULTI-VITAMINS [Concomitant]

REACTIONS (4)
  - DYSPHEMIA [None]
  - HYPOAESTHESIA [None]
  - PARAESTHESIA [None]
  - READING DISORDER [None]
